FAERS Safety Report 8165430-3 (Version None)
Quarter: 2012Q1

REPORT INFORMATION
  Report Type: 
  Country: None (occurrence: None)
  Receive Date: 20120227
  Receipt Date: 20120201
  Transmission Date: 20120608
  Serious: No
  Sender: FDA-Public Use
  Company Number: US-BAYER-2012-014007

PATIENT
  Age: 60 Year
  Sex: Male

DRUGS (1)
  1. STAXYN [Suspect]
     Route: 048

REACTIONS (1)
  - IRRITABILITY [None]
